FAERS Safety Report 10872011 (Version 1)
Quarter: 2015Q1

REPORT INFORMATION
  Report Type: Spontaneous
  Country: US (occurrence: US)
  Receive Date: 20150226
  Receipt Date: 20150226
  Transmission Date: 20150721
  Serious: Yes (Hospitalization, Other)
  Sender: FDA-Public Use
  Company Number: GXBR2015US000807

PATIENT
  Age: 44 Year
  Sex: Male
  Weight: 97.51 kg

DRUGS (5)
  1. B12-VITAMIIN [Concomitant]
     Indication: PRODUCT USED FOR UNKNOWN INDICATION
     Dosage: UNK DF, UNK
     Route: 065
  2. TEA, GREEN [Concomitant]
     Active Substance: GREEN TEA LEAF
     Indication: PRODUCT USED FOR UNKNOWN INDICATION
     Dosage: UNK DF, UNK
     Route: 065
  3. OMEPRAZOLE DELAYED RELEASE [Suspect]
     Active Substance: OMEPRAZOLE
     Indication: GASTROOESOPHAGEAL REFLUX DISEASE
     Dosage: 40 MG, QD
     Route: 048
  4. BAYER ASPIRIN [Concomitant]
     Active Substance: ASPIRIN
     Indication: PRODUCT USED FOR UNKNOWN INDICATION
     Dosage: UNK DF, UNK
     Route: 065
  5. D3 [Concomitant]
     Active Substance: 25-HYDROXYCHOLECALCIFEROL, 5-TRANS-
     Indication: PRODUCT USED FOR UNKNOWN INDICATION
     Dosage: UNK DF, UNK
     Route: 065

REACTIONS (18)
  - Nervous system disorder [Not Recovered/Not Resolved]
  - Vascular pain [Not Recovered/Not Resolved]
  - Pneumonia [Unknown]
  - Chest pain [Not Recovered/Not Resolved]
  - Fatigue [Not Recovered/Not Resolved]
  - Chest discomfort [Not Recovered/Not Resolved]
  - Dysgeusia [Unknown]
  - Cardiac disorder [Not Recovered/Not Resolved]
  - Heart valve incompetence [Unknown]
  - Muscle twitching [Unknown]
  - Hypoaesthesia [Unknown]
  - Dehydration [Unknown]
  - Metal poisoning [Not Recovered/Not Resolved]
  - Abdominal discomfort [Recovering/Resolving]
  - Hiatus hernia [Recovering/Resolving]
  - Colitis [Unknown]
  - Extrasystoles [Not Recovered/Not Resolved]
  - Cardiac flutter [Not Recovered/Not Resolved]

NARRATIVE: CASE EVENT DATE: 201502
